FAERS Safety Report 8828991 (Version 1)
Quarter: 2012Q4

REPORT INFORMATION
  Report Type: 
  Country: US (occurrence: US)
  Receive Date: 20121008
  Receipt Date: 20121008
  Transmission Date: 20130627
  Serious: Yes (Other)
  Sender: FDA-Public Use
  Company Number: US-AMGEN-USASP2012062243

PATIENT
  Sex: Male

DRUGS (4)
  1. XGEVA [Suspect]
     Indication: PROSTATE CANCER RECURRENT
  2. XGEVA [Suspect]
     Indication: METASTASES TO BONE
  3. LUPRON [Concomitant]
     Indication: PROSTATE CANCER RECURRENT
  4. LUPRON [Concomitant]
     Indication: METASTASES TO BONE

REACTIONS (2)
  - Metastases to bone [Unknown]
  - Pain in extremity [Unknown]
